FAERS Safety Report 6450146-1 (Version None)
Quarter: 2009Q4

REPORT INFORMATION
  Report Type: 
  Country: None (occurrence: None)
  Receive Date: 20091120
  Receipt Date: 20091120
  Transmission Date: 20100525
  Serious: Yes (Hospitalization)
  Sender: FDA-Public Use
  Company Number: None

PATIENT
  Age: 68 Year
  Sex: Male
  Weight: 83.91 kg

DRUGS (1)
  1. WARFARIN SODIUM [Suspect]
     Indication: PULMONARY EMBOLISM
     Dosage: 5 MG EVERY DAY PO
     Route: 048
     Dates: start: 20090318, end: 20090321

REACTIONS (4)
  - GASTRIC HAEMORRHAGE [None]
  - HAEMATOCRIT DECREASED [None]
  - HAEMOGLOBIN DECREASED [None]
  - PELVIC HAEMATOMA [None]
